FAERS Safety Report 5849533-1 (Version None)
Quarter: 2008Q3

REPORT INFORMATION
  Report Type: 
  Country: None (occurrence: None)
  Receive Date: 20080819
  Receipt Date: 20080814
  Transmission Date: 20090109
  Serious: Yes (Hospitalization, Other)
  Sender: FDA-Public Use
  Company Number: B0532760A

PATIENT
  Age: 34 Year
  Sex: Male

DRUGS (8)
  1. COMBIVIR [Suspect]
     Indication: HIV INFECTION
     Route: 048
     Dates: start: 20030101, end: 20080630
  2. COPEGUS [Suspect]
     Dosage: 1000MG PER DAY
     Route: 048
     Dates: start: 20080327, end: 20080507
  3. PEGASYS [Suspect]
     Dosage: 180MCG PER DAY
     Route: 058
     Dates: start: 20080327, end: 20080430
  4. COPEGUS [Suspect]
     Dosage: 600MG PER DAY
     Route: 048
     Dates: start: 20080507, end: 20080630
  5. PEGASYS [Suspect]
     Dosage: 135MCG PER DAY
     Route: 058
     Dates: start: 20080430, end: 20080630
  6. METHADONE HCL [Concomitant]
     Dosage: 12MG PER DAY
     Route: 065
     Dates: start: 20030101
  7. IDALPREM [Concomitant]
     Dosage: 5MG TWICE PER DAY
     Route: 048
     Dates: start: 20080101
  8. VIRAMUNE [Concomitant]
     Indication: HIV INFECTION
     Dosage: 200MG TWICE PER DAY
     Route: 048
     Dates: start: 20030101

REACTIONS (3)
  - ANAEMIA [None]
  - DRUG INTERACTION [None]
  - NEUTROPENIA [None]
